FAERS Safety Report 6087174-4 (Version None)
Quarter: 2009Q1

REPORT INFORMATION
  Report Type: 
  Country: None (occurrence: None)
  Receive Date: 20090223
  Receipt Date: 20090211
  Transmission Date: 20090719
  Serious: Yes (Hospitalization, Other)
  Sender: FDA-Public Use
  Company Number: US-MERCK-0706USA03760

PATIENT
  Age: 79 Year
  Sex: Female
  Weight: 47 kg

DRUGS (2)
  1. FOSAMAX [Suspect]
     Indication: OSTEOPOROSIS
     Route: 048
     Dates: start: 19950101
  2. FOSAMAX [Suspect]
     Route: 048
     Dates: start: 20010122, end: 20050801

REACTIONS (38)
  - AFFECTIVE DISORDER [None]
  - AMNESIA [None]
  - ANAEMIA [None]
  - ANXIETY [None]
  - AORTIC ARTERIOSCLEROSIS [None]
  - ATRIAL FIBRILLATION [None]
  - BREAST MASS [None]
  - CATARACT [None]
  - CHONDRITIS [None]
  - COMPRESSION FRACTURE [None]
  - DEPRESSION [None]
  - DIARRHOEA [None]
  - DRUG HYPERSENSITIVITY [None]
  - EAR INFECTION [None]
  - FALL [None]
  - GASTROINTESTINAL DISORDER [None]
  - GASTROOESOPHAGEAL REFLUX DISEASE [None]
  - MUSCLE SPASMS [None]
  - MUSCULOSKELETAL PAIN [None]
  - MYELODYSPLASTIC SYNDROME [None]
  - MYELOPROLIFERATIVE DISORDER [None]
  - NAUSEA [None]
  - OEDEMA PERIPHERAL [None]
  - OESOPHAGITIS [None]
  - ORAL CANDIDIASIS [None]
  - OSTEOMYELITIS [None]
  - OSTEONECROSIS [None]
  - PAIN IN EXTREMITY [None]
  - PELVIC FRACTURE [None]
  - PLATELET COUNT INCREASED [None]
  - RESTLESS LEGS SYNDROME [None]
  - SCIATICA [None]
  - SKIN LESION [None]
  - STERNAL FRACTURE [None]
  - THROMBOCYTHAEMIA [None]
  - THROMBOCYTOPENIA [None]
  - WEIGHT DECREASED [None]
  - WRIST FRACTURE [None]
